FAERS Safety Report 8096963-6 (Version None)
Quarter: 2012Q1

REPORT INFORMATION
  Report Type: 
  Country: None (occurrence: None)
  Receive Date: 20120129
  Receipt Date: 20111222
  Transmission Date: 20120608
  Serious: Yes (Hospitalization)
  Sender: FDA-Public Use
  Company Number: US-ABBOTT-11P-163-0838614-00

PATIENT
  Sex: Female
  Weight: 47.9 kg

DRUGS (21)
  1. CELEXA [Concomitant]
     Indication: DEPRESSION
  2. HUMIRA [Suspect]
     Indication: CROHN'S DISEASE
  3. CLONIDINE [Concomitant]
     Indication: INSOMNIA
     Dosage: 1 AND 1/2 TABLETS DAILY AT BEDTIME, PRN
  4. MIRALAX [Concomitant]
     Indication: FAECES HARD
     Dosage: 1 CUP DAILY
  5. HUMIRA [Suspect]
     Indication: CROHN'S DISEASE
     Dosage: DAY ONE
     Route: 058
     Dates: start: 20110617, end: 20110617
  6. AZATHIOPRINE [Concomitant]
     Indication: CROHN'S DISEASE
  7. RITALIN [Concomitant]
     Indication: ATTENTION DEFICIT/HYPERACTIVITY DISORDER
  8. MELATONIN [Concomitant]
     Indication: INSOMNIA
     Dosage: AT BEDTIME, PRN
  9. FISH OIL [Concomitant]
     Indication: MEDICAL DIET
  10. TURMERIC [Concomitant]
     Indication: ARTHRITIS
  11. PENTASA [Concomitant]
     Indication: CROHN'S DISEASE
  12. PROTONIX [Concomitant]
     Indication: GASTROOESOPHAGEAL REFLUX DISEASE
  13. HUMIRA [Suspect]
     Route: 058
     Dates: start: 20110701, end: 20110701
  14. HUMIRA [Suspect]
     Route: 058
     Dates: start: 20110715
  15. MULTI-VITAMIN [Concomitant]
     Indication: VITAMIN SUPPLEMENTATION
  16. PENTASA [Concomitant]
     Indication: COLITIS ULCERATIVE
  17. KEPPRA [Concomitant]
     Indication: CONVULSION
  18. VITAMIN D [Concomitant]
     Indication: VITAMIN SUPPLEMENTATION
     Dosage: DAILY
  19. VITAMIN D [Concomitant]
     Indication: ARTHRITIS
  20. LIDOCAINE [Concomitant]
     Indication: ARTHRALGIA
     Dosage: PETROLEUM, EVERY 1 - 2 HOURS PRN
  21. ALBUTEROL [Concomitant]
     Indication: RESPIRATORY DISORDER
     Dosage: PRN

REACTIONS (2)
  - INJECTION SITE PAIN [None]
  - VARICELLA [None]
